FAERS Safety Report 7368981-4 (Version None)
Quarter: 2011Q1

REPORT INFORMATION
  Report Type: 
  Country: None (occurrence: None)
  Receive Date: 20110308
  Receipt Date: 20110302
  Transmission Date: 20110831
  Serious: Yes (Other)
  Sender: FDA-Public Use
  Company Number: A0916309A

PATIENT
  Age: 85 Year
  Sex: Female

DRUGS (1)
  1. SODIUM FLUORIDE (FORMULATION UNKNOWN) (SODIUM FLUORIDE) [Suspect]
     Indication: DENTAL CLEANING
     Dosage: SINGLE DOSE, DENTAL
     Route: 004
     Dates: start: 20090713, end: 20090713

REACTIONS (8)
  - GINGIVAL SWELLING [None]
  - APHTHOUS STOMATITIS [None]
  - HEADACHE [None]
  - APHAGIA [None]
  - WEIGHT DECREASED [None]
  - EAR DISCOMFORT [None]
  - DIZZINESS [None]
  - FATIGUE [None]
